FAERS Safety Report 12071273 (Version 1)
Quarter: 2016Q1

REPORT INFORMATION
  Report Type: Spontaneous
  Country: BE (occurrence: BE)
  Receive Date: 20160211
  Receipt Date: 20160211
  Transmission Date: 20160526
  Serious: Yes (Death, Other)
  Sender: FDA-Public Use
  Company Number: BE-TAKEDA-2016TUS002213

PATIENT

DRUGS (1)
  1. ENTYVIO [Suspect]
     Active Substance: VEDOLIZUMAB
     Indication: GRAFT VERSUS HOST DISEASE
     Dosage: 300 MG, UNK
     Route: 042

REACTIONS (2)
  - Off label use [Unknown]
  - Graft versus host disease [Fatal]
